FAERS Safety Report 24691554 (Version 1)
Quarter: 2024Q4

REPORT INFORMATION
  Report Type: Spontaneous
  Country: US (occurrence: US)
  Receive Date: 20241203
  Receipt Date: 20241203
  Transmission Date: 20250115
  Serious: Yes (Other)
  Sender: PFIZER
  Company Number: US-PFIZER INC-PV202400155258

PATIENT
  Age: 65 Year
  Sex: Male

DRUGS (1)
  1. LINEZOLID [Suspect]
     Active Substance: LINEZOLID
     Dosage: UNK

REACTIONS (8)
  - Acute kidney injury [Recovering/Resolving]
  - Bone abscess [Unknown]
  - Abscess soft tissue [Unknown]
  - Soft tissue swelling [Unknown]
  - Joint effusion [Unknown]
  - Synovitis [Unknown]
  - Arthritis infective [Unknown]
  - Pruritus [Recovering/Resolving]
